FAERS Safety Report 13168668 (Version 1)
Quarter: 2017Q1

REPORT INFORMATION
  Report Type: Spontaneous
  Country: US (occurrence: US)
  Receive Date: 20170131
  Receipt Date: 20170131
  Transmission Date: 20170428
  Serious: No
  Sender: FDA-Public Use
  Company Number: US-GLAXOSMITHKLINE-US2017013322

PATIENT
  Age: 55 Year
  Sex: Female

DRUGS (2)
  1. ADVAIR DISKUS [Suspect]
     Active Substance: FLUTICASONE PROPIONATE\SALMETEROL XINAFOATE
     Indication: BRONCHITIS
     Dosage: 1 PUFF(S), BID
     Route: 055
     Dates: start: 20170126, end: 20170128
  2. LEVOTHYROXIN [Concomitant]
     Active Substance: LEVOTHYROXINE

REACTIONS (5)
  - Insomnia [Recovered/Resolved]
  - Burning sensation [Recovered/Resolved]
  - Throat irritation [Recovered/Resolved]
  - Product use issue [Recovered/Resolved]
  - Respiratory tract irritation [Recovered/Resolved]

NARRATIVE: CASE EVENT DATE: 20170126
